FAERS Safety Report 16576620 (Version 1)
Quarter: 2019Q3

REPORT INFORMATION
  Report Type: Report from Study
  Country: CZ (occurrence: CZ)
  Receive Date: 20190716
  Receipt Date: 20190716
  Transmission Date: 20191004
  Serious: Yes (Other)
  Sender: FDA-Public Use
  Company Number: CZ-AUROBINDO-AUR-APL-2019-040141

PATIENT

DRUGS (1)
  1. PARACETAMOL TABLET [Suspect]
     Active Substance: ACETAMINOPHEN
     Indication: PRODUCT USED FOR UNKNOWN INDICATION
     Dosage: 10 GRAM, DAILY (10 G, PER DAY)
     Route: 065

REACTIONS (5)
  - Hepatotoxicity [Unknown]
  - Overdose [Unknown]
  - Hepatorenal failure [Unknown]
  - Blood creatinine increased [Unknown]
  - Coagulopathy [Unknown]
